FAERS Safety Report 6204352-1 (Version None)
Quarter: 2009Q2

REPORT INFORMATION
  Report Type: 
  Country: None (occurrence: None)
  Receive Date: 20090527
  Receipt Date: 20090517
  Transmission Date: 20091009
  Serious: Yes (Other)
  Sender: FDA-Public Use
  Company Number: CZ-JNJFOC-20090503577

PATIENT
  Sex: Female

DRUGS (4)
  1. INVEGA [Suspect]
     Indication: SCHIZOPHRENIA
     Route: 048
  2. TOPAMAX [Concomitant]
  3. KEPPRA [Concomitant]
  4. ACIDUM FOLICUM [Concomitant]

REACTIONS (1)
  - CONVULSION [None]
